FAERS Safety Report 12486343 (Version 1)
Quarter: 2016Q2

REPORT INFORMATION
  Report Type: Spontaneous
  Country: FR (occurrence: FR)
  Receive Date: 20160621
  Receipt Date: 20160621
  Transmission Date: 20160815
  Serious: Yes (Hospitalization, Other)
  Sender: FDA-Public Use
  Company Number: FR-PFIZER INC-2016300742

PATIENT
  Age: 70 Year
  Sex: Female
  Weight: 111 kg

DRUGS (11)
  1. PANTOPRAZOLE [Concomitant]
     Active Substance: PANTOPRAZOLE SODIUM
     Dosage: UNK
  2. LAMALINE [Concomitant]
     Active Substance: ACETAMINOPHEN\CAFFEINE\OPIUM
     Dosage: 6 DF, DAILY
  3. TEMESTA [Concomitant]
     Active Substance: LORAZEPAM
     Dosage: UNK
  4. NOVATREX NOS [Suspect]
     Active Substance: AZITHROMYCIN OR METHOTREXATE SODIUM
     Indication: RHEUMATOID ARTHRITIS
     Dosage: 12.5 MG, WEEKLY
     Route: 048
  5. PREVISCAN [Concomitant]
     Active Substance: FLUINDIONE
     Dosage: UNK
  6. AMLOR [Concomitant]
     Active Substance: AMLODIPINE BESYLATE
     Dosage: 5 MG, DAILY
  7. FOSAVANCE [Concomitant]
     Active Substance: ALENDRONATE SODIUM\CHOLECALCIFEROL
     Dosage: UNK
  8. RASILEZ [Concomitant]
     Active Substance: ALISKIREN
     Dosage: 150 MG, DAILY
  9. ALLOPURINOL. [Concomitant]
     Active Substance: ALLOPURINOL
     Dosage: UNK
  10. ATARAX [Concomitant]
     Active Substance: HYDROXYZINE\HYDROXYZINE HYDROCHLORIDE
     Dosage: UNK
  11. CORTANCYL [Concomitant]
     Active Substance: PREDNISONE
     Dosage: 5 MG, DAILY

REACTIONS (8)
  - Escherichia sepsis [Unknown]
  - Shock [Unknown]
  - Renal tubular necrosis [Unknown]
  - Septic shock [Unknown]
  - Pyelonephritis [Unknown]
  - Acute kidney injury [Recovering/Resolving]
  - Thrombocytopenia [Recovering/Resolving]
  - Anaemia folate deficiency [Recovering/Resolving]

NARRATIVE: CASE EVENT DATE: 20160519
